FAERS Safety Report 20839117 (Version 1)
Quarter: 2022Q2

REPORT INFORMATION
  Report Type: Spontaneous
  Country: US (occurrence: US)
  Receive Date: 20220517
  Receipt Date: 20220517
  Transmission Date: 20220721
  Serious: No
  Sender: FDA-Public Use
  Company Number: US-BIOVITRUM-2022US06042

PATIENT
  Age: 3 Month
  Sex: Male

DRUGS (2)
  1. GAMIFANT [Suspect]
     Active Substance: EMAPALUMAB-LZSG
     Indication: COVID-19
     Route: 065
  2. GAMIFANT [Suspect]
     Active Substance: EMAPALUMAB-LZSG
     Route: 065

REACTIONS (4)
  - Disease progression [Unknown]
  - SARS-CoV-2 test positive [Unknown]
  - Pyrexia [Unknown]
  - Off label use [Unknown]
